FAERS Safety Report 8318387-6 (Version None)
Quarter: 2012Q2

REPORT INFORMATION
  Report Type: 
  Country: None (occurrence: None)
  Receive Date: 20120426
  Receipt Date: 20120426
  Transmission Date: 20120825
  Serious: Yes (Hospitalization)
  Sender: FDA-Public Use
  Company Number: None

PATIENT
  Age: 80 Year
  Sex: Male
  Weight: 77.7 kg

DRUGS (4)
  1. DOCETAXEL [Suspect]
     Indication: PROSTATIC DISORDER
     Dosage: 143MG DAY 6 OF EACH CYCLE IV
     Route: 042
     Dates: start: 20120424
  2. PREDNISONE [Concomitant]
  3. VIDAZA [Suspect]
     Indication: PROSTATIC DISORDER
     Dosage: 286 MG DAYS 1 - 5 EACH CYCLE IV
     Route: 042
     Dates: start: 20120419, end: 20120423
  4. DEXAMETHASONE [Concomitant]

REACTIONS (2)
  - DIARRHOEA [None]
  - CONSTIPATION [None]
